FAERS Safety Report 8324396-3 (Version None)
Quarter: 2012Q1

REPORT INFORMATION
  Report Type: 
  Country: None (occurrence: None)
  Receive Date: 20120315
  Receipt Date: 20110516
  Transmission Date: 20120608
  Serious: No
  Sender: FDA-Public Use
  Company Number: PHHY2011US43690

PATIENT

DRUGS (1)
  1. GLIENYA (FTY) CAPSULE [Suspect]
     Dosage: ORAL
     Route: 048

REACTIONS (1)
  - CARDIOVASCULAR DISORDER [None]
